FAERS Safety Report 13016968 (Version 1)
Quarter: 2016Q4

REPORT INFORMATION
  Report Type: Spontaneous
  Country: US (occurrence: US)
  Receive Date: 20161210
  Receipt Date: 20161210
  Transmission Date: 20170207
  Serious: Yes (Other)
  Sender: FDA-Public Use
  Company Number: None

PATIENT
  Age: 65 Year
  Sex: Female
  Weight: 72 kg

DRUGS (5)
  1. GLUCOSAMINE-CHONDROITIN WITH VITAMIN D3 + ANTIOXIDANTS CRAN POMEGRANATE [Concomitant]
  2. NAPROXEN 500 MG TABLET [Suspect]
     Active Substance: NAPROXEN
     Indication: PAIN
     Dosage: ?          QUANTITY:20 TABLET(S);?
     Route: 048
  3. EXTRA STRENGTH ACETAMINOPHEN [Concomitant]
     Active Substance: ACETAMINOPHEN
  4. FORMULA (VITAMINS FOR ACTIVE PEOPLE) ONE TABLET DAILY JOINT JUICE [Concomitant]
  5. ACTIVIVIT MATABOLISM [Concomitant]

REACTIONS (1)
  - Hypertension [None]

NARRATIVE: CASE EVENT DATE: 20160901
